FAERS Safety Report 9064774 (Version 1)
Quarter: 2013Q1

REPORT INFORMATION
  Report Type: Spontaneous
  Country: GB (occurrence: GB)
  Receive Date: 20130129
  Receipt Date: 20130129
  Transmission Date: 20140127
  Serious: No
  Sender: FDA-Public Use
  Company Number: GB-009507513-1301GBR011719

PATIENT
  Sex: Male

DRUGS (3)
  1. SITAGLIPTIN PHOSPHATE [Suspect]
     Route: 048
  2. VICTOZA [Concomitant]
  3. METFORMIN [Concomitant]

REACTIONS (1)
  - Off label use [Unknown]
